FAERS Safety Report 14800456 (Version 3)
Quarter: 2018Q3

REPORT INFORMATION
  Report Type: Spontaneous
  Country: US (occurrence: US)
  Receive Date: 20180424
  Receipt Date: 20180817
  Transmission Date: 20181010
  Serious: Yes (Death, Hospitalization, Disabling, Other)
  Sender: FDA-Public Use
  Company Number: US-009507513-1804USA008434

PATIENT
  Sex: Male

DRUGS (5)
  1. QUINAPRIL HYDROCHLORIDE. [Concomitant]
     Active Substance: QUINAPRIL HYDROCHLORIDE
     Indication: HYPERTENSION
  2. KEYTRUDA [Suspect]
     Active Substance: PEMBROLIZUMAB
     Indication: TRANSITIONAL CELL CARCINOMA
     Dosage: 200 MG,  EVERY 3  WEEKS, FOUR TOTAL INFUSIONS
     Dates: start: 2018, end: 20180404
  3. ALLOPURINOL. [Concomitant]
     Active Substance: ALLOPURINOL
  4. METFORMIN [Concomitant]
     Active Substance: METFORMIN HYDROCHLORIDE
     Indication: TYPE 2 DIABETES MELLITUS
  5. TRAMADOL HYDROCHLORIDE. [Concomitant]
     Active Substance: TRAMADOL HYDROCHLORIDE
     Indication: PAIN

REACTIONS (7)
  - Immune-mediated adverse reaction [Fatal]
  - Pneumonia [Fatal]
  - Increased bronchial secretion [Unknown]
  - Sputum retention [Unknown]
  - Myasthenia gravis [Fatal]
  - Malignant neoplasm progression [Fatal]
  - Aspiration [Not Recovered/Not Resolved]

NARRATIVE: CASE EVENT DATE: 2018
